FAERS Safety Report 9429644 (Version 1)
Quarter: 2013Q3

REPORT INFORMATION
  Report Type: Spontaneous
  Country: US (occurrence: US)
  Receive Date: 20130730
  Receipt Date: 20130730
  Transmission Date: 20140515
  Serious: No
  Sender: FDA-Public Use
  Company Number: US-ABBOTT-13P-163-1066385-00

PATIENT
  Age: 58 Year
  Sex: Female
  Weight: 85.81 kg

DRUGS (3)
  1. NIASPAN (COATED) [Suspect]
     Indication: BLOOD CHOLESTEROL INCREASED
     Route: 048
     Dates: start: 20130309
  2. NIASPAN (COATED) [Suspect]
     Indication: BLOOD CHOLESTEROL INCREASED
     Route: 048
     Dates: start: 201301, end: 201302
  3. NIASPAN (COATED) [Suspect]
     Route: 048
     Dates: start: 201302, end: 20130308

REACTIONS (2)
  - Pruritus generalised [Not Recovered/Not Resolved]
  - Flushing [Not Recovered/Not Resolved]
